FAERS Safety Report 25316583 (Version 3)
Quarter: 2025Q3

REPORT INFORMATION
  Report Type: Report from Study
  Country: US (occurrence: US)
  Receive Date: 20250515
  Receipt Date: 20250929
  Transmission Date: 20251020
  Serious: Yes (Other)
  Sender: UCB
  Company Number: US-UCBSA-2025028012

PATIENT
  Age: 19 Year
  Sex: Female
  Weight: 59 kg

DRUGS (3)
  1. FINTEPLA [Suspect]
     Active Substance: FENFLURAMINE
     Indication: Seizure
     Dates: start: 20201001
  2. CLOBAZAM [Concomitant]
     Active Substance: CLOBAZAM
     Indication: Epilepsy
     Dates: start: 2016
  3. VALPROATE [Concomitant]
     Active Substance: VALPROIC ACID
     Indication: Product used for unknown indication

REACTIONS (2)
  - Mitral valve incompetence [Not Recovered/Not Resolved]
  - Mitral valve thickening [Not Recovered/Not Resolved]

NARRATIVE: CASE EVENT DATE: 20250507
